FAERS Safety Report 5768357-7 (Version None)
Quarter: 2008Q2

REPORT INFORMATION
  Report Type: 
  Country: None (occurrence: None)
  Receive Date: 20080612
  Receipt Date: 20080514
  Transmission Date: 20081010
  Serious: No
  Sender: FDA-Public Use
  Company Number: US-ABBOTT-08P-163-0440312-00

PATIENT
  Sex: Male
  Weight: 68.1 kg

DRUGS (8)
  1. HUMIRA [Suspect]
     Indication: RHEUMATOID ARTHRITIS
     Route: 058
     Dates: start: 20060518
  2. HUMIRA [Suspect]
     Route: 058
     Dates: end: 20070901
  3. HUMIRA [Suspect]
     Route: 058
     Dates: start: 20070901
  4. HYDROXYCHLOROQUINE SULFATE [Concomitant]
     Indication: RHEUMATOID ARTHRITIS
     Route: 048
  5. PREGABALIN [Concomitant]
     Indication: DRUG USE FOR UNKNOWN INDICATION
     Route: 048
  6. TRAMADOL HCL [Concomitant]
     Indication: DRUG USE FOR UNKNOWN INDICATION
     Route: 048
  7. QUETIAPINE FUMARATE [Concomitant]
     Indication: DRUG USE FOR UNKNOWN INDICATION
     Route: 048
  8. PREDNISONE TAB [Concomitant]
     Indication: DRUG USE FOR UNKNOWN INDICATION

REACTIONS (6)
  - ALOPECIA [None]
  - CARPAL TUNNEL SYNDROME [None]
  - EXTERNAL EAR CELLULITIS [None]
  - LOCALISED INFECTION [None]
  - OSTEOARTHRITIS [None]
  - PRURITUS [None]
